FAERS Safety Report 8934313 (Version 1)
Quarter: 2012Q4

REPORT INFORMATION
  Report Type: 
  Country: BR (occurrence: BR)
  Receive Date: 20121129
  Receipt Date: 20121129
  Transmission Date: 20130627
  Serious: Yes (Hospitalization)
  Sender: FDA-Public Use
  Company Number: BR-PFIZER INC-2012293871

PATIENT
  Age: 84 Year
  Sex: Male
  Weight: 85 kg

DRUGS (4)
  1. XALATAN [Suspect]
     Indication: GLAUCOMA
     Dosage: 1 Gtt in the right eye (1.5ug), 1x/day
     Route: 047
     Dates: start: 2010
  2. AGLUCOSE [Concomitant]
     Indication: DIABETES
     Dosage: 50 mg, 1x/day
     Dates: start: 2001
  3. GLIFAGE [Concomitant]
     Indication: DIABETES
     Dosage: 500 mg, 1x/day
     Dates: start: 2001
  4. CAPTOPRIL [Concomitant]
     Indication: BLOOD PRESSURE INCREASED
     Dosage: 25 mg, 1x/day
     Dates: start: 2002

REACTIONS (2)
  - Glaucoma [Unknown]
  - Cataract [Unknown]
